FAERS Safety Report 6903292-X (Version None)
Quarter: 2010Q3

REPORT INFORMATION
  Report Type: 
  Country: None (occurrence: None)
  Receive Date: 20100803
  Receipt Date: 20080624
  Transmission Date: 20110219
  Serious: No
  Sender: FDA-Public Use
  Company Number: US-PFIZER INC-2008053002

PATIENT
  Sex: Female

DRUGS (7)
  1. LYRICA [Suspect]
     Indication: DIABETIC NEUROPATHY
     Route: 048
     Dates: start: 20080529, end: 20080611
  2. CARDIAC THERAPY [Concomitant]
  3. ALEVE (CAPLET) [Concomitant]
  4. PLAVIX [Concomitant]
  5. ACETYLSALICYLIC ACID SRT [Concomitant]
  6. CRESTOR [Concomitant]
  7. METFORMIN HCL [Concomitant]

REACTIONS (9)
  - ABDOMINAL PAIN UPPER [None]
  - ALOPECIA [None]
  - BALANCE DISORDER [None]
  - DIZZINESS [None]
  - DYSPEPSIA [None]
  - ONYCHALGIA [None]
  - PAIN IN EXTREMITY [None]
  - STOMATITIS [None]
  - SWELLING [None]
